FAERS Safety Report 23350473 (Version 1)
Quarter: 2023Q4

REPORT INFORMATION
  Report Type: Spontaneous
  Country: US (occurrence: None)
  Receive Date: 20231228
  Receipt Date: 20231228
  Transmission Date: 20240110
  Serious: No
  Sender: FDA-Public Use
  Company Number: None

PATIENT
  Age: 61 Year
  Sex: Male

DRUGS (1)
  1. GLATOPA [Suspect]
     Active Substance: GLATIRAMER ACETATE
     Indication: Multiple sclerosis
     Dosage: INJECTE 40MG (1 SYRINGE) SUBCUTANEOUSLY THREE TIMES  WEEKLY  AS DIRECTED
     Route: 058
     Dates: start: 202207

REACTIONS (1)
  - Cerebrovascular accident [None]
